FAERS Safety Report 4704307-X (Version None)
Quarter: 2005Q2

REPORT INFORMATION
  Report Type: 
  Country: None (occurrence: None)
  Receive Date: 20050630
  Receipt Date: 20050624
  Transmission Date: 20051028
  Serious: Yes (Life-Threatening, Hospitalization)
  Sender: FDA-Public Use
  Company Number: 2005SE03767

PATIENT
  Age: 33 Year
  Sex: Male

DRUGS (4)
  1. SEROQUEL [Suspect]
     Route: 048
     Dates: start: 20050601
  2. COMPENDIUM [Suspect]
     Dosage: 1 BOTTLE, DOSE UNKNOWN
     Route: 048
  3. SEREUPIN [Suspect]
     Route: 048
  4. ALPRAZOLAM [Suspect]
     Dosage: 2 BOTTLES, DOSE UNKNOWN
     Route: 048

REACTIONS (7)
  - COMA [None]
  - ELECTROCARDIOGRAM QT CORRECTED INTERVAL PROLONGED [None]
  - HEART RATE INCREASED [None]
  - INTENTIONAL MISUSE [None]
  - PNEUMONIA ASPIRATION [None]
  - RESPIRATORY FAILURE [None]
  - SUICIDE ATTEMPT [None]
